FAERS Safety Report 9696928 (Version 3)
Quarter: 2015Q3

REPORT INFORMATION
  Report Type: Spontaneous
  Country: US (occurrence: US)
  Receive Date: 20131119
  Receipt Date: 20150803
  Transmission Date: 20151125
  Serious: No
  Sender: FDA-Public Use
  Company Number: US-GILEAD-2007-0013806

PATIENT
  Age: 55 Year
  Sex: Female

DRUGS (11)
  1. NORVASC [Concomitant]
     Active Substance: AMLODIPINE BESYLATE
  2. NEXIUM [Concomitant]
     Active Substance: ESOMEPRAZOLE MAGNESIUM
  3. EPOGEN [Concomitant]
     Active Substance: ERYTHROPOIETIN
     Indication: RED BLOOD CELL COUNT DECREASED
  4. TOPROL XL [Concomitant]
     Active Substance: METOPROLOL SUCCINATE
  5. RENAGEL [Concomitant]
     Active Substance: SEVELAMER HYDROCHLORIDE
  6. LETAIRIS [Suspect]
     Active Substance: AMBRISENTAN
     Route: 048
     Dates: start: 20080108
  7. ARANESP [Concomitant]
     Active Substance: DARBEPOETIN ALFA
  8. DIGOXIN. [Concomitant]
     Active Substance: DIGOXIN
  9. SENSIPAR [Concomitant]
     Active Substance: CINACALCET HYDROCHLORIDE
  10. LETAIRIS [Suspect]
     Active Substance: AMBRISENTAN
     Indication: PULMONARY ARTERIAL HYPERTENSION
     Route: 048
     Dates: start: 20070821, end: 20080107
  11. PHOSLO [Concomitant]
     Active Substance: CALCIUM ACETATE

REACTIONS (1)
  - Red blood cell count decreased [Unknown]
